FAERS Safety Report 11605464 (Version 3)
Quarter: 2015Q4

REPORT INFORMATION
  Report Type: Spontaneous
  Country: FI (occurrence: FI)
  Receive Date: 20151007
  Receipt Date: 20151015
  Transmission Date: 20160304
  Serious: Yes (Other)
  Sender: FDA-Public Use
  Company Number: FI-SA-2015SA150910

PATIENT
  Age: 69 Year
  Sex: Female

DRUGS (4)
  1. MULTAQ [Suspect]
     Active Substance: DRONEDARONE
     Indication: ARRHYTHMIA
     Route: 048
     Dates: start: 201312
  2. PROGYNOVA [Concomitant]
     Active Substance: ESTRADIOL VALERATE
     Indication: HORMONE REPLACEMENT THERAPY
     Dosage: DOSE: 1MG TABLET
     Route: 048
  3. MAREVAN [Concomitant]
     Active Substance: WARFARIN SODIUM
     Indication: ANTICOAGULANT THERAPY
     Dosage: STRENGTH: 5MG TABLET
     Route: 048
  4. OXAMIN [Concomitant]
     Dosage: STRENGTH: 15MG TAB
     Route: 048

REACTIONS (3)
  - Erythema [Unknown]
  - Erysipelas [Not Recovered/Not Resolved]
  - Pruritus [Unknown]

NARRATIVE: CASE EVENT DATE: 20150920
